FAERS Safety Report 13689741 (Version 1)
Quarter: 2017Q2

REPORT INFORMATION
  Report Type: Report from Study
  Country: US (occurrence: US)
  Receive Date: 20170626
  Receipt Date: 20170626
  Transmission Date: 20170830
  Serious: Yes (Hospitalization)
  Sender: FDA-Public Use
  Company Number: US-BAYER-2017-084097

PATIENT
  Age: 54 Year
  Sex: Female

DRUGS (1)
  1. STIVARGA [Suspect]
     Active Substance: REGORAFENIB
     Indication: COLORECTAL CANCER
     Dosage: DAILY DOSE 160 MG
     Route: 048
     Dates: start: 20170414, end: 201705

REACTIONS (9)
  - Gout [None]
  - Abdominal discomfort [None]
  - Dyspnoea [None]
  - Fatigue [None]
  - Bacterial infection [None]
  - Electrolyte imbalance [None]
  - Blister [None]
  - Localised infection [None]
  - Stomatitis [None]

NARRATIVE: CASE EVENT DATE: 2017
